APPROVED DRUG PRODUCT: BUTALBITAL, ACETAMINOPHEN AND CAFFEINE
Active Ingredient: ACETAMINOPHEN; BUTALBITAL; CAFFEINE
Strength: 325MG;50MG;40MG
Dosage Form/Route: TABLET;ORAL
Application: A040511 | Product #001 | TE Code: AA
Applicant: STRIDES PHARMA INTERNATIONAL AG
Approved: Aug 27, 2003 | RLD: No | RS: Yes | Type: RX